FAERS Safety Report 17421093 (Version 3)
Quarter: 2020Q1

REPORT INFORMATION
  Report Type: Spontaneous
  Country: HU (occurrence: HU)
  Receive Date: 20200214
  Receipt Date: 20200330
  Transmission Date: 20200409
  Serious: Yes (Death, Life-Threatening, Hospitalization, Other)
  Sender: FDA-Public Use
  Company Number: NVSC2020HU040800

PATIENT
  Age: 23 Year
  Sex: Male
  Weight: 72 kg

DRUGS (6)
  1. PREGABALIN. [Suspect]
     Active Substance: PREGABALIN
     Dosage: UNK
     Route: 065
     Dates: start: 20101123, end: 20110103
  2. PREGABALIN. [Suspect]
     Active Substance: PREGABALIN
     Indication: EPILEPSY
     Dosage: 150 MG, BID
     Route: 048
     Dates: start: 20101116, end: 20101122
  3. ETHYL ALCOHOL [Suspect]
     Active Substance: ALCOHOL
     Indication: PRODUCT USED FOR UNKNOWN INDICATION
     Dosage: UNK
     Route: 065
  4. SERTRALINE [Concomitant]
     Active Substance: SERTRALINE HYDROCHLORIDE
     Indication: DEPRESSION
     Dosage: 50 MG, QD
     Route: 065
     Dates: start: 20101005, end: 20110103
  5. TEGRETOL XR [Suspect]
     Active Substance: CARBAMAZEPINE
     Indication: EPILEPSY
     Dosage: 400 MG, BID
     Route: 048
     Dates: start: 20070122, end: 20110103
  6. KEPPRA [Concomitant]
     Active Substance: LEVETIRACETAM
     Indication: PRODUCT USED FOR UNKNOWN INDICATION
     Dosage: 500 MG, BID
     Route: 065
     Dates: start: 20100505

REACTIONS (12)
  - Coma [Unknown]
  - Suicide attempt [Fatal]
  - Poisoning [Fatal]
  - Seizure [Recovered/Resolved]
  - Oxygen saturation decreased [Fatal]
  - Acute respiratory distress syndrome [Fatal]
  - Blood creatine phosphokinase increased [Fatal]
  - Pyrexia [Fatal]
  - Brain injury [Unknown]
  - Pulmonary function test decreased [Fatal]
  - Haemophilus infection [Unknown]
  - Status epilepticus [Fatal]

NARRATIVE: CASE EVENT DATE: 20110104
